FAERS Safety Report 4849334-7 (Version None)
Quarter: 2005Q4

REPORT INFORMATION
  Report Type: 
  Country: None (occurrence: None)
  Receive Date: 20051207
  Receipt Date: 20051123
  Transmission Date: 20060501
  Serious: Yes (Hospitalization)
  Sender: FDA-Public Use
  Company Number: 012027

PATIENT
  Age: 58 Year
  Sex: Female

DRUGS (17)
  1. PRIALT [Suspect]
     Indication: PAIN
     Dosage: 1.09 UG, ONCE/DAY, INTRATHECAL
     Route: 037
     Dates: start: 20051018
  2. MORPHINE [Concomitant]
  3. BUPIVACAINE [Concomitant]
  4. KETAMINE (KETAMINE) [Concomitant]
  5. DILAUDID [Concomitant]
  6. SOMA [Concomitant]
  7. LIPITOR /013261010/(ATORVASTATIN) [Concomitant]
  8. DETROL /01350201 /(TOLTERODINE) [Concomitant]
  9. LASIX /00032601/(FUROSEMIDE) [Concomitant]
  10. PANTOPRAZOLE SODIUM [Concomitant]
  11. SUCRALFATE [Concomitant]
  12. TRAZODONE HCL [Concomitant]
  13. MORPHINE [Concomitant]
  14. HYDROCODONE BITARTRATE [Concomitant]
  15. ZELNORM /01470301/(TEGASEROD) [Concomitant]
  16. FOLIC ACID [Concomitant]
  17. VALIUM /00017001/(DIAZEPAM) [Concomitant]

REACTIONS (19)
  - ABDOMINAL PAIN LOWER [None]
  - ACTIVITIES OF DAILY LIVING IMPAIRED [None]
  - ASTHENIA [None]
  - CONFUSIONAL STATE [None]
  - CONSTIPATION [None]
  - DEHYDRATION [None]
  - DIARRHOEA [None]
  - DIFFICULTY IN WALKING [None]
  - DRUG EFFECT DECREASED [None]
  - FEAR OF FALLING [None]
  - FEELING HOT AND COLD [None]
  - INADEQUATE ANALGESIA [None]
  - INFLUENZA LIKE ILLNESS [None]
  - MUSCLE TIGHTNESS [None]
  - MYALGIA [None]
  - NERVOUSNESS [None]
  - PAIN [None]
  - TREMOR [None]
  - URINARY TRACT INFECTION [None]
